FAERS Safety Report 7653161-5 (Version None)
Quarter: 2011Q3

REPORT INFORMATION
  Report Type: 
  Country: None (occurrence: None)
  Receive Date: 20110802
  Receipt Date: 20110802
  Transmission Date: 20111222
  Serious: No
  Sender: FDA-Public Use
  Company Number: None

PATIENT
  Age: 73 Year

DRUGS (1)
  1. LYRICA [Suspect]

REACTIONS (2)
  - DIARRHOEA [None]
  - DRY MOUTH [None]
